FAERS Safety Report 15600793 (Version 3)
Quarter: 2018Q4

REPORT INFORMATION
  Report Type: Spontaneous
  Country: US (occurrence: US)
  Receive Date: 20181109
  Receipt Date: 20181211
  Transmission Date: 20190205
  Serious: Yes (Hospitalization, Other)
  Sender: FDA-Public Use
  Company Number: US-ELI_LILLY_AND_COMPANY-US201810014914

PATIENT
  Sex: Female

DRUGS (3)
  1. ESTROGEN [Concomitant]
     Active Substance: ESTROGENS
     Indication: PRODUCT USED FOR UNKNOWN INDICATION
  2. TERIPARATIDE [Suspect]
     Active Substance: TERIPARATIDE
     Indication: PRODUCT USED FOR UNKNOWN INDICATION
     Dosage: UNK, UNKNOWN
     Route: 065
     Dates: start: 201809
  3. TERIPARATIDE [Suspect]
     Active Substance: TERIPARATIDE
     Dosage: UNK, UNKNOWN
     Route: 065
     Dates: start: 20181104

REACTIONS (18)
  - Arthritis [Unknown]
  - Meniscus injury [Unknown]
  - Erythema [Unknown]
  - Hip fracture [Recovering/Resolving]
  - Groin pain [Unknown]
  - Product dose omission [Unknown]
  - Weight decreased [Unknown]
  - Obsessive-compulsive disorder [Unknown]
  - Muscle spasms [Unknown]
  - Incorrect product administration duration [Unknown]
  - Depression [Not Recovered/Not Resolved]
  - Pain [Unknown]
  - Musculoskeletal discomfort [Unknown]
  - Fall [Recovered/Resolved]
  - Spinal compression fracture [Unknown]
  - Pain in extremity [Unknown]
  - Fibromyalgia [Not Recovered/Not Resolved]
  - Memory impairment [Unknown]

NARRATIVE: CASE EVENT DATE: 201809
